FAERS Safety Report 23393170 (Version 1)
Quarter: 2024Q1

REPORT INFORMATION
  Report Type: Report from Study
  Country: CA (occurrence: None)
  Receive Date: 20240111
  Receipt Date: 20240111
  Transmission Date: 20240410
  Serious: Yes (Other)
  Sender: FDA-Public Use
  Company Number: 2024A008488

PATIENT
  Sex: Female

DRUGS (5)
  1. TEZSPIRE [Suspect]
     Active Substance: TEZEPELUMAB-EKKO
     Route: 058
     Dates: start: 20231227
  2. ZENHALE [Concomitant]
     Active Substance: FORMOTEROL FUMARATE\MOMETASONE FUROATE
     Dosage: 200MCG/5MCG - 2 PUFFS QHS
  3. VENTOLIN [Concomitant]
     Active Substance: ALBUTEROL SULFATE
     Dosage: 100MCG - 2PUFFS BID PRN, START DATE: UNK-UNK-UNK;
  4. SPIRIVA RESPIMAT [Concomitant]
     Active Substance: TIOTROPIUM BROMIDE
     Dosage: 2PUFFS ONCE A DAY START DATE: UNK-UNK-2022
  5. MOMETASONE [Concomitant]
     Active Substance: MOMETASONE
     Dosage: START DATE: UNK-JAN-2023;

REACTIONS (2)
  - Heart rate irregular [Unknown]
  - Dizziness [Unknown]
